FAERS Safety Report 19105850 (Version 1)
Quarter: 2021Q2

REPORT INFORMATION
  Report Type: Spontaneous
  Country: HU (occurrence: HU)
  Receive Date: 20210407
  Receipt Date: 20210407
  Transmission Date: 20210717
  Serious: Yes (Other)
  Sender: FDA-Public Use
  Company Number: HU-GILEAD-2021-0524050

PATIENT
  Age: 43 Year
  Sex: Male

DRUGS (8)
  1. SUMAMED [Concomitant]
     Active Substance: AZITHROMYCIN ANHYDROUS
  2. QUAMATEL [Concomitant]
     Active Substance: FAMOTIDINE
  3. VEKLURY [Suspect]
     Active Substance: REMDESIVIR
     Indication: COVID-19
     Dosage: UNK
     Route: 065
     Dates: start: 20210227, end: 20210301
  4. IRBESARTAN HYDROCHLOROTHIAZIDE ZENTIVA [Concomitant]
     Active Substance: HYDROCHLOROTHIAZIDE\IRBESARTAN
  5. CEFTRIAXON KABI [Concomitant]
     Active Substance: CEFTRIAXONE
  6. FRONTIN [Concomitant]
     Active Substance: ALPRAZOLAM
  7. THEOSPIREX [THEOPHYLLINE] [Concomitant]
  8. SALOFALK [MESALAZINE] [Concomitant]
     Active Substance: MESALAMINE

REACTIONS (1)
  - Hepatotoxicity [Recovering/Resolving]

NARRATIVE: CASE EVENT DATE: 20210301
